FAERS Safety Report 24132507 (Version 1)
Quarter: 2024Q3

REPORT INFORMATION
  Report Type: Spontaneous
  Country: US (occurrence: None)
  Receive Date: 20240723
  Receipt Date: 20240723
  Transmission Date: 20241017
  Serious: Yes (Hospitalization)
  Sender: Public
  Company Number: None

PATIENT
  Age: 66 Year
  Sex: Female
  Weight: 53.4 kg

DRUGS (2)
  1. NIVOLUMAB [Suspect]
     Active Substance: NIVOLUMAB
     Indication: Thyroid cancer metastatic
     Dosage: OTHER FREQUENCY : Q4W;?
     Route: 042
     Dates: start: 20240711
  2. NIVOLUMAB [Suspect]
     Active Substance: NIVOLUMAB
     Indication: Papillary thyroid cancer

REACTIONS (11)
  - Fatigue [None]
  - Immune-mediated lung disease [None]
  - Nausea [None]
  - Hypoxia [None]
  - Dizziness [None]
  - Sinus tachycardia [None]
  - Dizziness [None]
  - Hypokalaemia [None]
  - Sepsis [None]
  - Tachypnoea [None]
  - Acute respiratory failure [None]

NARRATIVE: CASE EVENT DATE: 20240720
